FAERS Safety Report 17015465 (Version 1)
Quarter: 2019Q4

REPORT INFORMATION
  Report Type: Spontaneous
  Country: US (occurrence: US)
  Receive Date: 20191111
  Receipt Date: 20191111
  Transmission Date: 20200122
  Serious: No
  Sender: FDA-Public Use
  Company Number: US-MYLANLABS-2019M1101184

PATIENT
  Sex: Female
  Weight: 50 kg

DRUGS (1)
  1. FENTANYL TRANSDERMAL SYSTEM [Suspect]
     Active Substance: FENTANYL
     Indication: SPINAL PAIN
     Dosage: 1 DOSAGE FORM, Q2D (ONE PATCH CHANGED EVERY 48 HRS)
     Route: 062
     Dates: start: 201501

REACTIONS (3)
  - Wrong technique in product usage process [Recovered/Resolved]
  - Night sweats [Not Recovered/Not Resolved]
  - Product adhesion issue [Unknown]
